FAERS Safety Report 20649284 (Version 1)
Quarter: 2022Q1

REPORT INFORMATION
  Report Type: Spontaneous
  Country: US (occurrence: US)
  Receive Date: 20220329
  Receipt Date: 20220329
  Transmission Date: 20220423
  Serious: Yes (Other)
  Sender: FDA-Public Use
  Company Number: US-PFIZER INC-202200455423

PATIENT
  Sex: Female

DRUGS (1)
  1. PROTONIX [Suspect]
     Active Substance: PANTOPRAZOLE SODIUM
     Dosage: UNK

REACTIONS (6)
  - Systemic lupus erythematosus [Unknown]
  - Vitamin B12 abnormal [Unknown]
  - Blood magnesium abnormal [Unknown]
  - Pernicious anaemia [Unknown]
  - Osteoporosis [Unknown]
  - Contraindicated product prescribed [Unknown]
